FAERS Safety Report 5675458-0 (Version None)
Quarter: 2008Q2

REPORT INFORMATION
  Report Type: 
  Country: None (occurrence: None)
  Receive Date: 20080311
  Receipt Date: 20071113
  Transmission Date: 20081010
  Serious: No
  Sender: FDA-Public Use
  Company Number: 002#2#2007-00328

PATIENT
  Age: 57 Year
  Sex: Male
  Weight: 106.5953 kg

DRUGS (7)
  1. NEUPRO [Suspect]
     Indication: PARKINSON'S DISEASE
     Dosage: 2MG/24H,1 IN 1 D,TRANSDERMAL;4MG/24H,1 IN 1 D,TRANSDERMAL;6MG/24H,1 IN1 D,TRANSDERMAL
     Route: 062
     Dates: start: 20071030, end: 20071105
  2. NEUPRO [Suspect]
     Indication: PARKINSON'S DISEASE
     Dosage: 2MG/24H,1 IN 1 D,TRANSDERMAL;4MG/24H,1 IN 1 D,TRANSDERMAL;6MG/24H,1 IN1 D,TRANSDERMAL
     Route: 062
     Dates: start: 20071106, end: 20071112
  3. NEUPRO [Suspect]
     Indication: PARKINSON'S DISEASE
     Dosage: 2MG/24H,1 IN 1 D,TRANSDERMAL;4MG/24H,1 IN 1 D,TRANSDERMAL;6MG/24H,1 IN1 D,TRANSDERMAL
     Route: 062
     Dates: start: 20071113
  4. SINEMET [Concomitant]
  5. LEXAPRO [Concomitant]
  6. ALTASE [Concomitant]
  7. PRILOSEC [Concomitant]

REACTIONS (2)
  - APPLICATION SITE ERYTHEMA [None]
  - APPLICATION SITE PRURITUS [None]
